FAERS Safety Report 20025295 (Version 1)
Quarter: 2021Q4

REPORT INFORMATION
  Report Type: Spontaneous
  Country: ES (occurrence: ES)
  Receive Date: 20211102
  Receipt Date: 20211102
  Transmission Date: 20220304
  Serious: Yes (Hospitalization)
  Sender: FDA-Public Use
  Company Number: None

PATIENT
  Age: 86 Year
  Sex: Female

DRUGS (4)
  1. IBUPROFEN [Suspect]
     Active Substance: IBUPROFEN
     Indication: Arthralgia
     Dosage: 400 MG, Q8H
     Route: 048
     Dates: start: 20200731, end: 20200802
  2. ENOXAPARIN SODIUM [Suspect]
     Active Substance: ENOXAPARIN SODIUM
     Indication: Pulmonary embolism
     Dosage: 60 MG, Q12H (30 PRE-FILLED 0.6 ML SYRINGES)
     Route: 058
     Dates: start: 20210713, end: 20210802
  3. CARBIDOPA\LEVODOPA [Concomitant]
     Active Substance: CARBIDOPA\LEVODOPA
     Indication: Contusion
     Dosage: 1 DF, Q8H
     Route: 048
     Dates: start: 20150812
  4. OMEPRAZOL CINFA [Concomitant]
     Indication: Product used for unknown indication
     Dosage: 20 MG, Q24H
     Route: 048
     Dates: start: 20100807

REACTIONS (1)
  - Gastrointestinal haemorrhage [Recovered/Resolved]

NARRATIVE: CASE EVENT DATE: 20210802
